FAERS Safety Report 5180262-6 (Version None)
Quarter: 2006Q4

REPORT INFORMATION
  Report Type: 
  Country: None (occurrence: None)
  Receive Date: 20061212
  Receipt Date: 20061127
  Transmission Date: 20070319
  Serious: Yes (Other)
  Sender: FDA-Public Use
  Company Number: 2006RR-04728

PATIENT
  Age: 34 Year
  Sex: Male

DRUGS (1)
  1. CIPROFLOXACIN [Suspect]
     Indication: TUBERCULOSIS
     Dosage: UNK, UNK, ORAL
     Route: 048

REACTIONS (2)
  - CONTRACTED BLADDER [None]
  - TUBERCULOSIS OF GENITOURINARY SYSTEM [None]
